FAERS Safety Report 13806186 (Version 1)
Quarter: 2017Q3

REPORT INFORMATION
  Report Type: Report from Study
  Country: PK (occurrence: PK)
  Receive Date: 20170728
  Receipt Date: 20170728
  Transmission Date: 20171127
  Serious: Yes (Other)
  Sender: FDA-Public Use
  Company Number: PHHY2017PK110856

PATIENT
  Sex: Male
  Weight: 70 kg

DRUGS (1)
  1. TASIGNA [Suspect]
     Active Substance: NILOTINIB
     Indication: CHRONIC MYELOID LEUKAEMIA
     Dosage: 800 MG, BID
     Route: 048
     Dates: start: 20140828

REACTIONS (4)
  - Chest pain [Unknown]
  - Blood pressure systolic increased [Unknown]
  - Electrocardiogram ST segment depression [Unknown]
  - Heart rate increased [Unknown]
